FAERS Safety Report 19350854 (Version 3)
Quarter: 2021Q2

REPORT INFORMATION
  Report Type: Spontaneous
  Country: US (occurrence: US)
  Receive Date: 20210531
  Receipt Date: 20210609
  Transmission Date: 20210717
  Serious: Yes (Other)
  Sender: FDA-Public Use
  Company Number: US-ROCHE-2793172

PATIENT
  Sex: Female

DRUGS (4)
  1. TUKYSA [Suspect]
     Active Substance: TUCATINIB
     Indication: BREAST CANCER FEMALE
     Route: 065
  2. HERCEPTIN [Suspect]
     Active Substance: TRASTUZUMAB
     Indication: PRODUCT USED FOR UNKNOWN INDICATION
     Route: 065
  3. KEPPRA [Concomitant]
     Active Substance: LEVETIRACETAM
  4. XELODA [Suspect]
     Active Substance: CAPECITABINE
     Indication: PRODUCT USED FOR UNKNOWN INDICATION
     Route: 048

REACTIONS (5)
  - Cardiotoxicity [Unknown]
  - Seizure [Unknown]
  - Syncope [Unknown]
  - Cardiac disorder [Unknown]
  - Hypersomnia [Unknown]
